FAERS Safety Report 25147030 (Version 4)
Quarter: 2025Q3

REPORT INFORMATION
  Report Type: Spontaneous
  Country: US (occurrence: US)
  Receive Date: 20250401
  Receipt Date: 20250810
  Transmission Date: 20251021
  Serious: No
  Sender: ALEXION PHARMACEUTICALS
  Company Number: US-AstraZeneca-CH-00838063AP

PATIENT
  Sex: Female

DRUGS (1)
  1. BREZTRI [Suspect]
     Active Substance: BUDESONIDE\FORMOTEROL\GLYCOPYRROLATE
     Dosage: 160 MICROGRAM, BID

REACTIONS (8)
  - Contraindicated device used [Unknown]
  - Device issue [Unknown]
  - Overdose [Unknown]
  - Ill-defined disorder [Unknown]
  - Abnormal sensation in eye [Unknown]
  - Superficial injury of eye [Unknown]
  - Eye inflammation [Unknown]
  - Device delivery system issue [Unknown]
